FAERS Safety Report 12247244 (Version 2)
Quarter: 2016Q2

REPORT INFORMATION
  Report Type: Spontaneous
  Country: JP (occurrence: JP)
  Receive Date: 20160407
  Receipt Date: 20160527
  Transmission Date: 20160815
  Serious: Yes (Other)
  Sender: FDA-Public Use
  Company Number: JP-LUNDBECK-DKLU2012072

PATIENT
  Age: 12 Year
  Sex: Male

DRUGS (2)
  1. MYSTAN [Suspect]
     Active Substance: CLOBAZAM
     Indication: EPILEPSY
     Route: 048
  2. PHENOBARBITAL. [Suspect]
     Active Substance: PHENOBARBITAL
     Indication: EPILEPSY
     Route: 048

REACTIONS (6)
  - Blood lactate dehydrogenase increased [Recovering/Resolving]
  - Neutrophil morphology abnormal [Unknown]
  - Pancytopenia [Recovered/Resolved]
  - Anaemia megaloblastic [Unknown]
  - Folate deficiency [Unknown]
  - Pallor [Unknown]
